FAERS Safety Report 5531365-5 (Version None)
Quarter: 2007Q4

REPORT INFORMATION
  Report Type: 
  Country: None (occurrence: None)
  Receive Date: 20071127
  Receipt Date: 20071113
  Transmission Date: 20080405
  Serious: Yes (Hospitalization)
  Sender: FDA-Public Use
  Company Number: 2007AP001305

PATIENT
  Age: 48 Year
  Sex: Male

DRUGS (2)
  1. TERBINAFINE HCL [Suspect]
     Indication: ONYCHOMYCOSIS
     Dosage: 250 MG PO
     Route: 048
     Dates: start: 20070820, end: 20071001
  2. ORLISTAT (ORLISTAT) [Concomitant]

REACTIONS (3)
  - BLOOD BLISTER [None]
  - PURPURA [None]
  - THROMBOCYTOPENIA [None]
